FAERS Safety Report 5028687-3 (Version None)
Quarter: 2006Q2

REPORT INFORMATION
  Report Type: 
  Country: None (occurrence: None)
  Receive Date: 20060619
  Receipt Date: 20060612
  Transmission Date: 20061013
  Serious: Yes (Hospitalization)
  Sender: FDA-Public Use
  Company Number: US-JNJFOC-20060603365

PATIENT
  Sex: Female
  Weight: 81.65 kg

DRUGS (5)
  1. DURAGESIC-100 [Suspect]
     Indication: PAIN
     Route: 062
  2. ACTIQ [Suspect]
     Indication: FIBROMYALGIA
     Route: 002
  3. PROVIGIL [Concomitant]
  4. CYTOMEL [Concomitant]
  5. XANAX [Concomitant]

REACTIONS (2)
  - PNEUMONIA [None]
  - RESPIRATORY DEPRESSION [None]
